FAERS Safety Report 25179923 (Version 1)
Quarter: 2025Q2

REPORT INFORMATION
  Report Type: Spontaneous
  Country: US (occurrence: US)
  Receive Date: 20250409
  Receipt Date: 20250409
  Transmission Date: 20250717
  Serious: No
  Sender: BAYER
  Company Number: US-BAYER-2025A045824

PATIENT
  Sex: Male

DRUGS (2)
  1. NUBEQA [Suspect]
     Active Substance: DAROLUTAMIDE
  2. VITAMIN B2 [Concomitant]
     Active Substance: RIBOFLAVIN

REACTIONS (3)
  - Paraesthesia [None]
  - Burning sensation [None]
  - Hypoaesthesia [None]

NARRATIVE: CASE EVENT DATE: 20250403
